FAERS Safety Report 20673761 (Version 1)
Quarter: 2022Q2

REPORT INFORMATION
  Report Type: Report from Study
  Country: DO (occurrence: DO)
  Receive Date: 20220405
  Receipt Date: 20220405
  Transmission Date: 20220721
  Serious: Yes (Other)
  Sender: FDA-Public Use
  Company Number: DO-NOVARTISPH-NVSC2021DO273899

PATIENT
  Sex: Female

DRUGS (1)
  1. KISQALI [Suspect]
     Active Substance: RIBOCICLIB
     Indication: Breast cancer
     Dosage: 600 MG, QD
     Route: 048
     Dates: start: 20210503

REACTIONS (12)
  - Lung neoplasm malignant [Unknown]
  - Neoplasm malignant [Unknown]
  - Metastases to spine [Unknown]
  - Vomiting [Unknown]
  - Oedema [Unknown]
  - Paraplegia [Unknown]
  - Disorientation [Unknown]
  - Headache [Unknown]
  - Crying [Unknown]
  - Asthma [Unknown]
  - Contusion [Unknown]
  - Product dose omission issue [Unknown]
